FAERS Safety Report 26133961 (Version 1)
Quarter: 2025Q4

REPORT INFORMATION
  Report Type: Spontaneous
  Country: US (occurrence: US)
  Receive Date: 20251209
  Receipt Date: 20251209
  Transmission Date: 20260117
  Serious: No
  Sender: LEO PHARM
  Company Number: US-LEO Pharma-384648

PATIENT
  Age: 76 Year
  Sex: Female

DRUGS (1)
  1. ANZUPGO [Suspect]
     Active Substance: DELGOCITINIB
     Indication: Product used for unknown indication
     Dosage: TWICE DAILY AS NEEDED APPLY TO HANDS, AS NECESSARY
     Dates: start: 202510

REACTIONS (1)
  - Condition aggravated [Unknown]
